FAERS Safety Report 25929849 (Version 1)
Quarter: 2025Q4

REPORT INFORMATION
  Report Type: Spontaneous
  Country: US (occurrence: US)
  Receive Date: 20251016
  Receipt Date: 20251016
  Transmission Date: 20260117
  Serious: Yes (Other)
  Sender: SANOFI AVENTIS
  Company Number: US-SA-2025SA305628

PATIENT
  Sex: Female
  Weight: 69.09 kg

DRUGS (5)
  1. DUPIXENT [Suspect]
     Active Substance: DUPILUMAB
     Indication: Dermatitis atopic
     Dosage: 300 MG, QOW
     Route: 058
  2. MIRENA [Concomitant]
     Active Substance: LEVONORGESTREL
  3. LORATADINE [Concomitant]
     Active Substance: LORATADINE
  4. PIMECROLIMUS [Concomitant]
     Active Substance: PIMECROLIMUS
  5. HYDROXYCHLOROQUINE SULFATE [Concomitant]
     Active Substance: HYDROXYCHLOROQUINE SULFATE

REACTIONS (3)
  - Lupus vulgaris [Unknown]
  - Injection site bruising [Unknown]
  - Dry eye [Unknown]
